FAERS Safety Report 21698907 (Version 1)
Quarter: 2022Q4

REPORT INFORMATION
  Report Type: Spontaneous
  Country: US (occurrence: US)
  Receive Date: 20221208
  Receipt Date: 20221208
  Transmission Date: 20230113
  Serious: No
  Sender: FDA-Public Use
  Company Number: US-AMGEN-USASP2022211260

PATIENT
  Age: 13 Year
  Sex: Male

DRUGS (2)
  1. APREMILAST [Suspect]
     Active Substance: APREMILAST
     Indication: Alopecia universalis
     Dosage: UNK
     Route: 065
  2. APREMILAST [Suspect]
     Active Substance: APREMILAST
     Indication: Off label use

REACTIONS (6)
  - Drug ineffective for unapproved indication [Unknown]
  - Off label use [Unknown]
  - Lethargy [Unknown]
  - Nausea [Unknown]
  - Headache [Unknown]
  - Diarrhoea [Unknown]
